FAERS Safety Report 9774696 (Version 2)
Quarter: 2014Q1

REPORT INFORMATION
  Report Type: Spontaneous
  Country: US (occurrence: US)
  Receive Date: 20131220
  Receipt Date: 20140102
  Transmission Date: 20141002
  Serious: No
  Sender: FDA-Public Use
  Company Number: US-PFIZER INC-2013364419

PATIENT
  Age: 59 Year
  Sex: Female
  Weight: 54.42 kg

DRUGS (4)
  1. PRISTIQ [Suspect]
     Indication: MAJOR DEPRESSION
     Dosage: 150 MG (BY TAKING A TABLET OF 100MG AND A TABLET OF 50MG TOGETHER), 1X/DAY
     Route: 048
     Dates: start: 201302, end: 20131218
  2. SEROQUEL [Suspect]
     Dosage: UNK
  3. WELLBUTRIN [Concomitant]
     Dosage: UNK
  4. KLONOPIN [Concomitant]
     Dosage: UNK

REACTIONS (5)
  - Weight increased [Unknown]
  - Weight decreased [Unknown]
  - Hair growth abnormal [Unknown]
  - Decreased appetite [Unknown]
  - Alopecia [Unknown]
